FAERS Safety Report 9123239 (Version 1)
Quarter: 2013Q1

REPORT INFORMATION
  Report Type: Spontaneous
  Country: US (occurrence: None)
  Receive Date: 20130226
  Receipt Date: 20130226
  Transmission Date: 20140127
  Serious: Yes (Other)
  Sender: FDA-Public Use
  Company Number: None

PATIENT
  Age: 58 Year
  Sex: Female
  Weight: 49.9 kg

DRUGS (1)
  1. FLUTICASONE PROPIONATE NASAL 50 MCG [Suspect]
     Indication: NASAL DISORDER
     Dosage: 2 SPRAYS PER NOSTRIL ONCE A DAY NASAL
     Route: 045
     Dates: start: 20130115, end: 20130126

REACTIONS (1)
  - Death [None]
